FAERS Safety Report 6819020-2 (Version None)
Quarter: 2010Q3

REPORT INFORMATION
  Report Type: 
  Country: None (occurrence: None)
  Receive Date: 20100707
  Receipt Date: 20100629
  Transmission Date: 20110219
  Serious: Yes (Death, Other)
  Sender: FDA-Public Use
  Company Number: AU-WYE-G05508310

PATIENT
  Sex: Male

DRUGS (6)
  1. TORISEL [Suspect]
     Indication: RENAL CANCER METASTATIC
     Dosage: 25MG WEEKLY WITH A COUPLE OF DOSE OMISSIONS DUE TO PATIENT PREFERENCE AND INTERCURRENT ISSUES
     Route: 042
     Dates: start: 20091127, end: 20100121
  2. MORPHINE [Concomitant]
     Indication: COUGH
     Dosage: UP TO 10MG INJECTION
     Route: 058
     Dates: start: 20100120, end: 20100202
  3. CLOTRIMAZOLE [Concomitant]
     Indication: FUNGAL SKIN INFECTION
     Dosage: CREAM
     Route: 061
     Dates: end: 20100202
  4. HEPARIN SODIUM [Concomitant]
     Indication: THROMBOSIS PROPHYLAXIS
     Dosage: 40MG INJECTION
     Route: 058
     Dates: end: 20100202
  5. ACETAMINOPHEN [Concomitant]
     Indication: PAIN
     Dosage: 4000MG TABLET
     Route: 048
  6. ACETAMINOPHEN [Concomitant]
     Indication: PYREXIA

REACTIONS (24)
  - BLOOD ALBUMIN DECREASED [None]
  - BLOOD ALKALINE PHOSPHATASE INCREASED [None]
  - BLOOD PHOSPHORUS DECREASED [None]
  - CONDITION AGGRAVATED [None]
  - CYTOKINE RELEASE SYNDROME [None]
  - DISEASE PROGRESSION [None]
  - DRUG DOSE OMISSION [None]
  - FATIGUE [None]
  - FUNGAL INFECTION [None]
  - HAEMATOCRIT DECREASED [None]
  - HYPERSENSITIVITY [None]
  - HYPOTENSION [None]
  - LOWER RESPIRATORY TRACT INFECTION [None]
  - LYMPHOCYTE COUNT DECREASED [None]
  - MALIGNANT NEOPLASM PROGRESSION [None]
  - MEAN CELL VOLUME DECREASED [None]
  - MEAN PLATELET VOLUME INCREASED [None]
  - METASTASES TO LUNG [None]
  - PLATELET COUNT DECREASED [None]
  - PLEURAL EFFUSION [None]
  - RED BLOOD CELL COUNT DECREASED [None]
  - RED CELL DISTRIBUTION WIDTH INCREASED [None]
  - SOMNOLENCE [None]
  - WHEEZING [None]
